FAERS Safety Report 10882537 (Version 2)
Quarter: 2015Q1

REPORT INFORMATION
  Report Type: Report from Study
  Country: CL (occurrence: CL)
  Receive Date: 20150303
  Receipt Date: 20150309
  Transmission Date: 20150721
  Serious: Yes (Hospitalization, Other)
  Sender: FDA-Public Use
  Company Number: CL-ASTRAZENECA-2015SE18206

PATIENT
  Age: 29601 Day
  Sex: Male

DRUGS (6)
  1. CARVEDILOL. [Concomitant]
     Active Substance: CARVEDILOL
  2. ASPIRIN. [Concomitant]
     Active Substance: ASPIRIN
  3. BRILINTA [Suspect]
     Active Substance: TICAGRELOR
     Route: 048
     Dates: start: 20150128, end: 20150218
  4. OMEPRAZOLE. [Concomitant]
     Active Substance: OMEPRAZOLE
  5. SPIRONOLACTONE. [Concomitant]
     Active Substance: SPIRONOLACTONE
  6. INSULINE [Concomitant]
     Active Substance: INSULIN NOS

REACTIONS (1)
  - Ischaemic stroke [Unknown]

NARRATIVE: CASE EVENT DATE: 20150218
